FAERS Safety Report 10034052 (Version 2)
Quarter: 2014Q2

REPORT INFORMATION
  Report Type: Report from Study
  Country: US (occurrence: US)
  Receive Date: 20140325
  Receipt Date: 20140425
  Transmission Date: 20141212
  Serious: Yes (Other)
  Sender: FDA-Public Use
  Company Number: US-AMGEN-USACT2014019069

PATIENT
  Age: 69 Year
  Sex: Male

DRUGS (6)
  1. PEGFILGRASTIM [Suspect]
     Indication: ACUTE LYMPHOCYTIC LEUKAEMIA
     Dosage: 5-10 MCG/KG DAILY ON 4 DAYS (6 MG,ON DAY 4)
     Route: 058
  2. RITUXIMAB [Concomitant]
     Indication: ACUTE LYMPHOCYTIC LEUKAEMIA
     Dosage: 375 MG/M2, ON DAY 2 AND 8 OF CYCLES 2 AND 4
     Route: 042
  3. INOTUZUMAB OZOGAMICIN [Concomitant]
     Indication: ACUTE LYMPHOCYTIC LEUKAEMIA
     Dosage: ON DAY 2 OR 3 (CYCLES 2 AND 4 ONLY) 1.3 MG/M2
     Route: 042
     Dates: start: 20121203
  4. METHOTREXATE SODIUM [Concomitant]
     Indication: ACUTE LYMPHOCYTIC LEUKAEMIA
     Dosage: OVER 2 HOURS ON DAY 1 (50 MG/M2)
     Route: 042
  5. METHOTREXATE SODIUM [Concomitant]
     Dosage: CONTINUOUS OVER 22 HOURS ON DAY 1. 200 MG/M2, UNK
     Route: 041
  6. CYTARABINE [Concomitant]
     Indication: ACUTE LYMPHOCYTIC LEUKAEMIA
     Dosage: 0.5 G/M2, 3 HOURS TWICE DAY X 4 DOSES ON DAYS 2 AND 3
     Route: 042

REACTIONS (1)
  - Sepsis [Recovered/Resolved]
